FAERS Safety Report 5218557-X (Version None)
Quarter: 2007Q1

REPORT INFORMATION
  Report Type: 
  Country: None (occurrence: None)
  Receive Date: 20070122
  Receipt Date: 20070111
  Transmission Date: 20070707
  Serious: Yes (Death)
  Sender: FDA-Public Use
  Company Number: 2007SP000595

PATIENT
  Age: 67 Year
  Sex: Male

DRUGS (1)
  1. TEMODAL [Suspect]
     Indication: ANAPLASTIC ASTROCYTOMA
     Dosage: 220 MG; QD; PO
     Route: 048
     Dates: start: 20061121, end: 20061125

REACTIONS (3)
  - PNEUMONIA [None]
  - RESPIRATORY DISORDER [None]
  - URINARY TRACT INFECTION BACTERIAL [None]
